FAERS Safety Report 16153778 (Version 1)
Quarter: 2019Q2

REPORT INFORMATION
  Report Type: Spontaneous
  Country: US (occurrence: US)
  Receive Date: 20190403
  Receipt Date: 20190403
  Transmission Date: 20190711
  Serious: No
  Sender: FDA-Public Use
  Company Number: US-PFIZER INC-2019133575

PATIENT
  Age: 63 Year
  Sex: Female
  Weight: 78.93 kg

DRUGS (1)
  1. XANAX [Suspect]
     Active Substance: ALPRAZOLAM
     Indication: ANXIETY
     Dosage: 1.25 MG, 3X/DAY  (TAKE HALF A XANAX THREE TIMES A DAY AND A WHOLE ONE AT NIGHT TO REST)

REACTIONS (1)
  - Somnolence [Unknown]
